FAERS Safety Report 5443748-2 (Version None)
Quarter: 2007Q3

REPORT INFORMATION
  Report Type: 
  Country: None (occurrence: None)
  Receive Date: 20070905
  Receipt Date: 20070824
  Transmission Date: 20080115
  Serious: Yes (Hospitalization)
  Sender: FDA-Public Use
  Company Number: JP-SANOFI-SYNTHELABO-F01200700953

PATIENT
  Sex: Female

DRUGS (8)
  1. PURSENNID [Concomitant]
     Indication: PAINFUL DEFAECATION
     Dosage: 24 MG
     Route: 048
     Dates: start: 20070724, end: 20070724
  2. IBUPROFEN [Concomitant]
     Indication: NASOPHARYNGITIS
     Route: 048
     Dates: start: 20070608, end: 20070611
  3. ASTOMIN [Concomitant]
     Indication: NASOPHARYNGITIS
     Route: 048
     Dates: start: 20070608, end: 20070611
  4. ANAFRANIL [Suspect]
     Indication: DEPRESSION
     Dosage: 75 MG DIVIDED INTO 2 DOSES 75 MG
     Route: 048
     Dates: start: 20070310, end: 20070724
  5. ANAFRANIL [Suspect]
     Dosage: 25 MG
     Route: 048
     Dates: start: 20070729
  6. CERCINE [Concomitant]
     Indication: DEPRESSION
     Route: 048
     Dates: start: 20070330, end: 20070724
  7. ZOLPIDEM TARTRATE [Suspect]
     Indication: INSOMNIA
     Dosage: 12.5 MG
     Route: 048
     Dates: start: 20070608, end: 20070724
  8. DEPAKENE [Concomitant]
     Indication: DEPRESSION
     Route: 048
     Dates: start: 20060310, end: 20070724

REACTIONS (1)
  - ILEUS [None]
